FAERS Safety Report 9739000 (Version 3)
Quarter: 2014Q1

REPORT INFORMATION
  Report Type: Spontaneous
  Country: VE (occurrence: VE)
  Receive Date: 20131209
  Receipt Date: 20140228
  Transmission Date: 20141002
  Serious: Yes (Other)
  Sender: FDA-Public Use
  Company Number: PHHY2013VE140150

PATIENT
  Age: 71 Year
  Sex: Female

DRUGS (3)
  1. FORADIL [Suspect]
     Indication: ASTHMA
     Dosage: 12 UG, DAILY
     Route: 055
  2. MIFLONIDE [Suspect]
     Indication: ASTHMA
     Dosage: 800 UG, DAILY
     Route: 055
  3. MIFLONIDE [Suspect]
     Dosage: 400 UG, DAILY
     Route: 055

REACTIONS (2)
  - Breast cancer [Recovering/Resolving]
  - Asthma [Not Recovered/Not Resolved]
